FAERS Safety Report 5379618-8 (Version None)
Quarter: 2007Q2

REPORT INFORMATION
  Report Type: 
  Country: None (occurrence: None)
  Receive Date: 20070530
  Receipt Date: 20070306
  Transmission Date: 20071010
  Serious: No
  Sender: FDA-Public Use
  Company Number: 2007PV031212

PATIENT
  Age: 62 Year
  Sex: Female

DRUGS (9)
  1. BYETTA [Suspect]
     Indication: DIABETES MELLITUS NON-INSULIN-DEPENDENT
     Dosage: 10 MCG; BID; SC : 5 MCG; BID; SC
     Route: 058
     Dates: start: 20060401, end: 20060701
  2. BYETTA [Suspect]
     Indication: DIABETES MELLITUS NON-INSULIN-DEPENDENT
     Dosage: 10 MCG; BID; SC : 5 MCG; BID; SC
     Route: 058
     Dates: start: 20060701
  3. ACTOS [Suspect]
     Dosage: 30 MG; QAM; PO : 15 MG; QPM; PO : 15 MG; BID; PO : 30 MG; QD; PO
     Route: 048
     Dates: end: 20070201
  4. ACTOS [Suspect]
     Dosage: 30 MG; QAM; PO : 15 MG; QPM; PO : 15 MG; BID; PO : 30 MG; QD; PO
     Route: 048
     Dates: start: 20070201
  5. ACTOS [Suspect]
     Dosage: 30 MG; QAM; PO : 15 MG; QPM; PO : 15 MG; BID; PO : 30 MG; QD; PO
     Route: 048
     Dates: start: 20070201
  6. METFORMIN HCL [Concomitant]
  7. DIOVAN [Concomitant]
  8. VYTORIN [Concomitant]
  9. FELODIPINE [Concomitant]

REACTIONS (5)
  - FOOD CRAVING [None]
  - GLYCOSYLATED HAEMOGLOBIN INCREASED [None]
  - NAUSEA [None]
  - WEIGHT DECREASED [None]
  - WEIGHT INCREASED [None]
